FAERS Safety Report 7425772-3 (Version None)
Quarter: 2011Q2

REPORT INFORMATION
  Report Type: 
  Country: None (occurrence: None)
  Receive Date: 20110418
  Receipt Date: 20110418
  Transmission Date: 20111010
  Serious: Yes (Hospitalization, Other)
  Sender: FDA-Public Use
  Company Number: None

PATIENT
  Age: 68 Year
  Sex: Male

DRUGS (13)
  1. REVLIMID [Suspect]
     Indication: MULTIPLE MYELOMA
     Dosage: 15 MG DAILY ORALLY
     Route: 048
     Dates: start: 20100804, end: 20100815
  2. DEXAMETHASONE [Concomitant]
  3. LISINOPRIL [Concomitant]
  4. GABAPENTIN [Concomitant]
  5. TRAZODONE [Concomitant]
  6. CYCLOBENZAPRINE [Concomitant]
  7. FAMOTIDINE [Concomitant]
  8. METFORMIN [Concomitant]
  9. OXYCODONE [Concomitant]
  10. ACYCLOVIR [Concomitant]
  11. TAMSULOSIN HCL [Concomitant]
  12. SIMVASTATIN [Concomitant]
  13. METHADONE [Concomitant]

REACTIONS (3)
  - CONFUSIONAL STATE [None]
  - URINARY INCONTINENCE [None]
  - PYREXIA [None]
